FAERS Safety Report 21824040 (Version 1)
Quarter: 2023Q1

REPORT INFORMATION
  Report Type: Report from Study
  Country: US (occurrence: US)
  Receive Date: 20230105
  Receipt Date: 20230105
  Transmission Date: 20230418
  Serious: No
  Sender: FDA-Public Use
  Company Number: US-ABBVIE-4258791

PATIENT
  Age: 72 Year
  Sex: Female

DRUGS (1)
  1. IMBRUVICA [Suspect]
     Active Substance: IBRUTINIB
     Indication: Waldenstrom^s macroglobulinaemia
     Route: 048
     Dates: start: 202203

REACTIONS (3)
  - Ulcer [Recovering/Resolving]
  - Muscular weakness [Recovering/Resolving]
  - Brain oedema [Recovering/Resolving]

NARRATIVE: CASE EVENT DATE: 20220301
